FAERS Safety Report 4307825-1 (Version None)
Quarter: 2004Q1

REPORT INFORMATION
  Report Type: 
  Country: None (occurrence: None)
  Receive Date: 20040226
  Receipt Date: 20030114
  Transmission Date: 20041129
  Serious: No
  Sender: FDA-Public Use
  Company Number: 2003142026US

PATIENT
  Age: 82 Year
  Sex: Female
  Weight: 86.2 kg

DRUGS (11)
  1. CELEBREX [Suspect]
     Indication: OSTEOARTHRITIS
     Dosage: 200 MG, QD, ORAL; 200 MG, BID, ORAL
     Route: 048
     Dates: start: 19990101, end: 20021201
  2. CELEBREX [Suspect]
     Indication: OSTEOARTHRITIS
     Dosage: 200 MG, QD, ORAL; 200 MG, BID, ORAL
     Route: 048
     Dates: start: 20021201
  3. LIPITOR [Suspect]
     Indication: BLOOD CHOLESTEROL INCREASED
     Dosage: 10 MG, QD, ORAL
     Route: 048
     Dates: start: 20020101
  4. VITAMIN C [Concomitant]
  5. VITAMIN B COMPLEX CAP [Concomitant]
  6. VITAMIN E [Concomitant]
  7. BENTYL [Concomitant]
  8. TAGAMET [Concomitant]
  9. AMARYL [Concomitant]
  10. ZIAC [Concomitant]
  11. ALTACE [Concomitant]

REACTIONS (4)
  - ARTHRALGIA [None]
  - BLOOD CHOLESTEROL INCREASED [None]
  - MYALGIA [None]
  - OEDEMA [None]
